FAERS Safety Report 21530438 (Version 1)
Quarter: 2022Q4

REPORT INFORMATION
  Report Type: Spontaneous
  Country: US (occurrence: None)
  Receive Date: 20221028
  Receipt Date: 20221028
  Transmission Date: 20230113
  Serious: Yes (Life-Threatening, Other)
  Sender: FDA-Public Use
  Company Number: None

PATIENT
  Age: 52 Year
  Sex: Male
  Weight: 60.1 kg

DRUGS (25)
  1. JAKAFI [Suspect]
     Active Substance: RUXOLITINIB
     Indication: Bone marrow transplant
     Dosage: FREQUENCY : TWICE A DAY;?
     Route: 048
     Dates: start: 20220615
  2. JAKAFI [Suspect]
     Active Substance: RUXOLITINIB
     Indication: Graft versus host disease
  3. SIROLIMUS [Suspect]
     Active Substance: SIROLIMUS
     Indication: Bone marrow transplant
     Dosage: FREQUENCY : DAILY;?
     Route: 048
     Dates: start: 20220512
  4. SIROLIMUS [Suspect]
     Active Substance: SIROLIMUS
     Indication: Graft versus host disease
  5. ELIQUIS [Concomitant]
     Active Substance: APIXABAN
  6. ACYCLOVIR [Concomitant]
     Active Substance: ACYCLOVIR
  7. bezlotoxumab 600 mg [Concomitant]
  8. fidaxomicin 200 mg tablet [Concomitant]
  9. PANTOPRAZOLE [Concomitant]
     Active Substance: PANTOPRAZOLE
  10. potassium chloride 20 mEq SR tablet [Concomitant]
  11. PREDNISONE [Concomitant]
     Active Substance: PREDNISONE
  12. Lomotil 2.5-0.025 mg tablet [Concomitant]
  13. CRESEMBA [Concomitant]
     Active Substance: ISAVUCONAZONIUM SULFATE
  14. Bactrim DS 800-160 mg [Concomitant]
  15. magnesium oxide 400 mg tablet [Concomitant]
  16. LINEZOLID [Concomitant]
     Active Substance: LINEZOLID
  17. lactase 3000 unit tablet [Concomitant]
  18. acetaminophen 1,000 mg tablet [Concomitant]
  19. IBUPROFEN [Concomitant]
     Active Substance: IBUPROFEN
  20. ergocalciferol 50,000 unit capsule [Concomitant]
  21. calcium carbonate tablet [Concomitant]
  22. hydrocortisone 2.5% rectal cream [Concomitant]
  23. prochlorperazine 5 mg tablet [Concomitant]
  24. budesonide 3 mg 24hr capsule [Concomitant]
  25. ESCITALOPRAM [Concomitant]
     Active Substance: ESCITALOPRAM OXALATE

REACTIONS (2)
  - Deep vein thrombosis [None]
  - Graft versus host disease in gastrointestinal tract [None]

NARRATIVE: CASE EVENT DATE: 20221025
